FAERS Safety Report 7234220-8 (Version None)
Quarter: 2011Q1

REPORT INFORMATION
  Report Type: 
  Country: None (occurrence: None)
  Receive Date: 20110119
  Receipt Date: 20110113
  Transmission Date: 20110831
  Serious: Yes (Hospitalization, Disabling)
  Sender: FDA-Public Use
  Company Number: GB-ABBOTT-10P-167-0653751-00

PATIENT
  Age: 88 Year
  Sex: Male

DRUGS (15)
  1. IPRATROPIUM BROMIDE [Concomitant]
     Indication: PRODUCT USED FOR UNKNOWN INDICATION
  2. CALCIUM CARBONATE+COLECALCIFEROL [Concomitant]
     Indication: PRODUCT USED FOR UNKNOWN INDICATION
  3. FUROSEMIDE [Concomitant]
     Indication: PRODUCT USED FOR UNKNOWN INDICATION
  4. EPILIM CHRONO [Suspect]
     Route: 048
  5. COCODAMOL [Concomitant]
     Indication: PRODUCT USED FOR UNKNOWN INDICATION
  6. LANSOPRAZOLE [Concomitant]
     Indication: PRODUCT USED FOR UNKNOWN INDICATION
  7. EPILIM CHRONO [Suspect]
     Route: 048
     Dates: start: 20100721, end: 20100904
  8. SALAMOL [Concomitant]
     Indication: PRODUCT USED FOR UNKNOWN INDICATION
  9. SALMETEROL+FLUTICASONE [Concomitant]
     Indication: PRODUCT USED FOR UNKNOWN INDICATION
  10. LEVOTHYROXINE [Concomitant]
     Indication: PRODUCT USED FOR UNKNOWN INDICATION
  11. RISEDRONATE SODIUM [Concomitant]
     Indication: PRODUCT USED FOR UNKNOWN INDICATION
  12. SANDO K [Concomitant]
     Indication: PRODUCT USED FOR UNKNOWN INDICATION
  13. EPILIM CHRONO [Suspect]
     Indication: EPILEPSY
     Dates: start: 20031006
  14. EPILIM CHRONO [Suspect]
     Dates: end: 20090721
  15. SENNA [Concomitant]
     Indication: PRODUCT USED FOR UNKNOWN INDICATION

REACTIONS (14)
  - FATIGUE [None]
  - MALAISE [None]
  - INCONTINENCE [None]
  - TREMOR [None]
  - SOMNOLENCE [None]
  - RASH [None]
  - DEPRESSION [None]
  - PREMATURE AGEING [None]
  - DYSPNOEA [None]
  - ABASIA [None]
  - UNDERDOSE [None]
  - WEIGHT DECREASED [None]
  - ASTHENIA [None]
  - SKIN DISCOLOURATION [None]
